FAERS Safety Report 4855353-7 (Version None)
Quarter: 2005Q4

REPORT INFORMATION
  Report Type: 
  Country: None (occurrence: None)
  Receive Date: 20051125
  Receipt Date: 20050630
  Transmission Date: 20060501
  Serious: Yes (Hospitalization)
  Sender: FDA-Public Use
  Company Number: US-JNJFOC-20050700544

PATIENT
  Age: 79 Year
  Sex: Female
  Weight: 58.4 kg

DRUGS (2)
  1. LEVAQUIN [Suspect]
  2. R115777 (TIPIFARNIB) TABLETS [Suspect]
     Indication: ACUTE MYELOID LEUKAEMIA
     Dosage: 200 MG, 2 IN 1 DAY, ORAL
     Route: 048
     Dates: start: 20050505, end: 20050621

REACTIONS (4)
  - DIZZINESS [None]
  - NAUSEA [None]
  - PRURITUS [None]
  - RASH [None]
